FAERS Safety Report 7396538-8 (Version None)
Quarter: 2011Q1

REPORT INFORMATION
  Report Type: 
  Country: None (occurrence: None)
  Receive Date: 20110328
  Receipt Date: 20110318
  Transmission Date: 20110831
  Serious: Yes (Hospitalization)
  Sender: FDA-Public Use
  Company Number: 1000012910

PATIENT
  Age: 66 Year
  Sex: Female
  Weight: 67 kg

DRUGS (7)
  1. ENALAPRIL MALEATE [Concomitant]
  2. ADIRO (ACETYLSALICYLIC ACID)(ACETYLSALICYLIC ACID) [Concomitant]
  3. CLORAZEPATE DIPOTASSIUM [Concomitant]
  4. ESCITALOPRAM [Suspect]
     Indication: MAJOR DEPRESSION
     Dosage: (1 IN 1 D)
  5. ZOLPIDEM (ZOLPIDEM)(ZOLPIDEM) [Concomitant]
  6. BLINDED STUDY DRUG (BLINDED STUDY DRUG) [Suspect]
     Indication: MAJOR DEPRESSION
     Dates: start: 20090415, end: 20090429
  7. INSULIN (INSULIN) (INSULIN) [Concomitant]

REACTIONS (3)
  - BIPOLAR I DISORDER [None]
  - ABNORMAL BEHAVIOUR [None]
  - CONFUSIONAL STATE [None]
